FAERS Safety Report 5706293-2 (Version None)
Quarter: 2008Q2

REPORT INFORMATION
  Report Type: 
  Country: None (occurrence: None)
  Receive Date: 20080328
  Receipt Date: 20071203
  Transmission Date: 20081010
  Serious: Yes (Other)
  Sender: FDA-Public Use
  Company Number: US-WYE-H01603007

PATIENT
  Age: 34 Year
  Sex: Female
  Weight: 63.56 kg

DRUGS (4)
  1. ALAVERT [Suspect]
     Indication: HYPERSENSITIVITY
     Dosage: 1 TABLET 1X PER 1 DAY, ORAL ; 1 TABLET 1X PER 1 DAY, ORAL ; 1 TABLET 1X PER 1 DAY, ORAL
     Route: 048
     Dates: start: 20030101, end: 20050101
  2. ALAVERT [Suspect]
     Indication: HYPERSENSITIVITY
     Dosage: 1 TABLET 1X PER 1 DAY, ORAL ; 1 TABLET 1X PER 1 DAY, ORAL ; 1 TABLET 1X PER 1 DAY, ORAL
     Route: 048
     Dates: start: 20071001, end: 20071001
  3. ALAVERT [Suspect]
     Indication: HYPERSENSITIVITY
     Dosage: 1 TABLET 1X PER 1 DAY, ORAL ; 1 TABLET 1X PER 1 DAY, ORAL ; 1 TABLET 1X PER 1 DAY, ORAL
     Route: 048
     Dates: start: 20071203
  4. MULTIVITAMINS (ASCORBIC ACID/ERGOCALCIFEROL/FOLIC ACID/NICOTINAMIDE/PA [Concomitant]

REACTIONS (2)
  - BLOOD PRESSURE DECREASED [None]
  - DIZZINESS [None]
